FAERS Safety Report 8373685-5 (Version None)
Quarter: 2012Q2

REPORT INFORMATION
  Report Type: 
  Country: None (occurrence: None)
  Receive Date: 20120521
  Receipt Date: 20120517
  Transmission Date: 20120825
  Serious: No
  Sender: FDA-Public Use
  Company Number: US-TEVA-338667USA

PATIENT
  Sex: Female
  Weight: 52.21 kg

DRUGS (2)
  1. JUNEL 1.5/30 [Concomitant]
     Indication: ORAL CONTRACEPTION
     Dates: end: 20120507
  2. PLAN B ONE-STEP [Suspect]
     Indication: POST COITAL CONTRACEPTION
     Dosage: 1.5 MILLIGRAM;
     Route: 048
     Dates: start: 20120310, end: 20120310

REACTIONS (2)
  - MENSTRUATION IRREGULAR [None]
  - MENSTRUATION DELAYED [None]
